FAERS Safety Report 16377560 (Version 2)
Quarter: 2019Q3

REPORT INFORMATION
  Report Type: Spontaneous
  Country: US (occurrence: US)
  Receive Date: 20190531
  Receipt Date: 20190813
  Transmission Date: 20191004
  Serious: No
  Sender: FDA-Public Use
  Company Number: US-PFIZER INC-2019228238

PATIENT
  Sex: Female

DRUGS (4)
  1. FOLIC ACID. [Suspect]
     Active Substance: FOLIC ACID
     Dosage: UNK
  2. ERYTHROMYCIN. [Suspect]
     Active Substance: ERYTHROMYCIN
     Dosage: UNK
  3. VITAMIN B12 [Suspect]
     Active Substance: CYANOCOBALAMIN
     Dosage: UNK
  4. IRON [Suspect]
     Active Substance: IRON
     Dosage: UNK

REACTIONS (2)
  - Drug eruption [Unknown]
  - Drug hypersensitivity [Unknown]
